FAERS Safety Report 21505272 (Version 2)
Quarter: 2023Q2

REPORT INFORMATION
  Report Type: Spontaneous
  Country: DE (occurrence: DE)
  Receive Date: 20221026
  Receipt Date: 20230425
  Transmission Date: 20230722
  Serious: No
  Sender: FDA-Public Use
  Company Number: DE-ALKEM LABORATORIES LIMITED-DE-ALKEM-2022-10276

PATIENT
  Age: 42 Year
  Sex: Female
  Weight: 53 kg

DRUGS (3)
  1. FINGOLIMOD [Suspect]
     Active Substance: FINGOLIMOD
     Indication: Relapsing-remitting multiple sclerosis
     Dosage: 0.5 MILLIGRAM
     Route: 048
     Dates: start: 20210222
  2. CHOLECALCIFEROL [Concomitant]
     Active Substance: CHOLECALCIFEROL
     Indication: Prophylaxis
     Dosage: 20000 IU INTERNATIONAL UNIT(S), ONCE WEEKLY
     Route: 048
     Dates: start: 2015
  3. PREGABALIN [Concomitant]
     Active Substance: PREGABALIN
     Indication: Paraesthesia
     Dosage: 75 MILLIGRAM, BID ( EVERY 0.5 DAY)
     Route: 048
     Dates: start: 20210201

REACTIONS (1)
  - Lymphopenia [Recovered/Resolved]

NARRATIVE: CASE EVENT DATE: 20210322
